FAERS Safety Report 9827920 (Version 3)
Quarter: 2014Q2

REPORT INFORMATION
  Report Type: Spontaneous
  Country: ES (occurrence: ES)
  Receive Date: 20140117
  Receipt Date: 20140411
  Transmission Date: 20141212
  Serious: Yes (Death, Other)
  Sender: FDA-Public Use
  Company Number: ES-PFIZER INC-2014005730

PATIENT
  Age: 70 Year
  Sex: Female

DRUGS (2)
  1. BESITRAN [Suspect]
     Indication: ANXIETY
     Dosage: 75 MG, UNK
     Dates: start: 2013
  2. COZAAR [Concomitant]
     Dosage: UNK

REACTIONS (4)
  - Myocardial infarction [Fatal]
  - Acute myocardial infarction [Fatal]
  - Congestive cardiomyopathy [Fatal]
  - Arteriosclerosis [Fatal]
